FAERS Safety Report 6927512-0 (Version None)
Quarter: 2010Q3

REPORT INFORMATION
  Report Type: 
  Country: None (occurrence: None)
  Receive Date: 20100817
  Receipt Date: 20100806
  Transmission Date: 20110219
  Serious: No
  Sender: FDA-Public Use
  Company Number: US-JNJFOC-20100701387

PATIENT
  Sex: Male
  Weight: 113.4 kg

DRUGS (6)
  1. DURAGESIC-100 [Suspect]
     Indication: PAIN
     Route: 062
  2. ANTIDEPRESSANT NOS [Suspect]
     Indication: DEPRESSION
     Route: 048
  3. CYMBALTA [Concomitant]
     Indication: FIBROMYALGIA
     Route: 048
  4. LYRICA [Concomitant]
     Indication: FIBROMYALGIA
     Route: 048
  5. OXYCODONE [Concomitant]
     Indication: PAIN
     Dosage: UPTO 4 PER DAY
     Route: 048
  6. PRILOSEC [Concomitant]
     Indication: ULCER
     Route: 048

REACTIONS (6)
  - APPLICATION SITE ERYTHEMA [None]
  - DRUG DOSE OMISSION [None]
  - HYPERHIDROSIS [None]
  - MALAISE [None]
  - NAUSEA [None]
  - WRONG TECHNIQUE IN DRUG USAGE PROCESS [None]
